FAERS Safety Report 12127931 (Version 2)
Quarter: 2016Q2

REPORT INFORMATION
  Report Type: Spontaneous
  Country: US (occurrence: US)
  Receive Date: 20160229
  Receipt Date: 20160429
  Transmission Date: 20160815
  Serious: No
  Sender: FDA-Public Use
  Company Number: US-PFIZER INC-2016118631

PATIENT
  Age: 35 Year
  Sex: Female

DRUGS (3)
  1. GABAPENTIN. [Suspect]
     Active Substance: GABAPENTIN
     Indication: ANXIETY
     Dosage: 400 MG, 4X/DAY
     Route: 048
     Dates: end: 20140826
  2. VENLAFAXINE [Concomitant]
     Active Substance: VENLAFAXINE HYDROCHLORIDE
     Indication: DEPRESSION
  3. VENLAFAXINE [Concomitant]
     Active Substance: VENLAFAXINE HYDROCHLORIDE
     Indication: ANXIETY
     Dosage: 75 MG, 2X/DAY

REACTIONS (8)
  - Drug hypersensitivity [Unknown]
  - Product use issue [Recovered/Resolved]
  - Pain [Unknown]
  - Anger [Unknown]
  - Mood altered [Recovered/Resolved]
  - Oedema [Recovered/Resolved]
  - Swelling [Unknown]
  - Malaise [Unknown]
